FAERS Safety Report 17485181 (Version 3)
Quarter: 2020Q2

REPORT INFORMATION
  Report Type: Spontaneous
  Country: BR (occurrence: BR)
  Receive Date: 20200302
  Receipt Date: 20200625
  Transmission Date: 20200713
  Serious: Yes (Hospitalization, Other)
  Sender: FDA-Public Use
  Company Number: BR-PURDUE-GBR-2020-0075346

PATIENT
  Sex: Female

DRUGS (3)
  1. ROSUVASTATIN. [Concomitant]
     Active Substance: ROSUVASTATIN
     Dosage: 1 TABLET, DAILY
  2. ARADOIS [Concomitant]
     Active Substance: LOSARTAN POTASSIUM
     Indication: HYPERTENSION
     Dosage: 1 TABLET, DAILY (STRENGTH 50 MG)
  3. RESTIVA [Suspect]
     Active Substance: BUPRENORPHINE
     Indication: SPINAL OSTEOARTHRITIS
     Dosage: 1 PATCH, WEEKLY (EACH 7 DAYS) (STRENGTH 5MG)
     Route: 062
     Dates: start: 20200129, end: 20200206

REACTIONS (17)
  - Vision blurred [Unknown]
  - Abdominal pain upper [Unknown]
  - Hypertension [Not Recovered/Not Resolved]
  - Arrhythmia [Recovered/Resolved]
  - Dizziness [Unknown]
  - Diarrhoea [Not Recovered/Not Resolved]
  - Weight decreased [Not Recovered/Not Resolved]
  - Nausea [Unknown]
  - Vomiting [Unknown]
  - Toxicity to various agents [Unknown]
  - Dairy intolerance [Not Recovered/Not Resolved]
  - Hyperhidrosis [Unknown]
  - Syncope [Unknown]
  - Catheterisation cardiac [Unknown]
  - Muscular weakness [Unknown]
  - Eating disorder [Not Recovered/Not Resolved]
  - Anosmia [Unknown]

NARRATIVE: CASE EVENT DATE: 20200129
